FAERS Safety Report 15255967 (Version 1)
Quarter: 2018Q3

REPORT INFORMATION
  Report Type: Spontaneous
  Country: US (occurrence: US)
  Receive Date: 20180718
  Receipt Date: 20180718
  Transmission Date: 20181010
  Serious: No
  Sender: FDA-Public Use
  Company Number: None

PATIENT
  Age: 56 Year
  Sex: Female

DRUGS (4)
  1. ZORTRESS [Suspect]
     Active Substance: EVEROLIMUS
  2. TACROLIMUS. [Concomitant]
     Active Substance: TACROLIMUS
  3. XIFAXAN [Concomitant]
     Active Substance: RIFAXIMIN
  4. SPIRONOLACTONE. [Concomitant]
     Active Substance: SPIRONOLACTONE

REACTIONS (3)
  - Rash [None]
  - Skin exfoliation [None]
  - Urticaria [None]

NARRATIVE: CASE EVENT DATE: 20180718
